FAERS Safety Report 10780060 (Version 1)
Quarter: 2015Q1

REPORT INFORMATION
  Report Type: Spontaneous
  Country: US (occurrence: None)
  Receive Date: 20150209
  Receipt Date: 20150209
  Transmission Date: 20150721
  Serious: Yes (Hospitalization)
  Sender: FDA-Public Use
  Company Number: None

PATIENT
  Age: 70 Year
  Sex: Female

DRUGS (16)
  1. FOSAMAX [Concomitant]
     Active Substance: ALENDRONATE SODIUM
  2. ASPIRIN. [Concomitant]
     Active Substance: ASPIRIN
  3. NALTREXONE [Concomitant]
     Active Substance: NALTREXONE
  4. PEPCID [Concomitant]
     Active Substance: FAMOTIDINE
  5. CALCIUM W/ VIT D [Concomitant]
  6. CITALOPRAM [Concomitant]
     Active Substance: CITALOPRAM HYDROBROMIDE
  7. AMPYRA [Concomitant]
     Active Substance: DALFAMPRIDINE
  8. OXAZEPAM. [Concomitant]
     Active Substance: OXAZEPAM
  9. PROAIR HFA [Concomitant]
     Active Substance: ALBUTEROL SULFATE
  10. AMPYRA [Suspect]
     Active Substance: DALFAMPRIDINE
     Indication: MULTIPLE SCLEROSIS
     Route: 048
     Dates: start: 201009
  11. MVI [Concomitant]
     Active Substance: VITAMINS
  12. TESSALON [Concomitant]
     Active Substance: BENZONATATE
  13. ZOVIRAX [Concomitant]
     Active Substance: ACYCLOVIR
  14. CHONDROITIN SULFATE (BOVINE)\GLUCOSAMINE SULFATE [Concomitant]
     Active Substance: CHONDROITIN SULFATE (BOVINE)\GLUCOSAMINE SULFATE
  15. METAMUCIL [Concomitant]
     Active Substance: PLANTAGO SEED
  16. VITAMIN C [Concomitant]
     Active Substance: ASCORBIC ACID

REACTIONS (5)
  - White blood cell count increased [None]
  - Hip fracture [None]
  - Femur fracture [None]
  - Culture urine positive [None]
  - Haemoglobin decreased [None]

NARRATIVE: CASE EVENT DATE: 20150128
